FAERS Safety Report 16883767 (Version 1)
Quarter: 2019Q4

REPORT INFORMATION
  Report Type: Spontaneous
  Country: GB (occurrence: GB)
  Receive Date: 20191004
  Receipt Date: 20191004
  Transmission Date: 20200122
  Serious: Yes (Other)
  Sender: FDA-Public Use
  Company Number: GB-ADVANZ PHARMA-201909000840

PATIENT

DRUGS (10)
  1. RIVAROXABAN [Concomitant]
     Active Substance: RIVAROXABAN
  2. LANSOPRAZOLE. [Concomitant]
     Active Substance: LANSOPRAZOLE
  3. DIGOXIN. [Suspect]
     Active Substance: DIGOXIN
     Indication: HEART RATE INCREASED
     Dosage: 125 MG
     Route: 048
     Dates: start: 20190801
  4. ATORVASTATIN [Concomitant]
     Active Substance: ATORVASTATIN
  5. BISOPROLOL FUMARATE. [Concomitant]
     Active Substance: BISOPROLOL FUMARATE
  6. FINASTERIDE. [Concomitant]
     Active Substance: FINASTERIDE
  7. LISINOPRIL. [Concomitant]
     Active Substance: LISINOPRIL
  8. LINAGLIPTIN [Concomitant]
     Active Substance: LINAGLIPTIN
     Indication: DIABETES MELLITUS
  9. GLICLAZIDE [Suspect]
     Active Substance: GLICLAZIDE
     Indication: DIABETES MELLITUS
  10. DIGOXIN. [Suspect]
     Active Substance: DIGOXIN
     Dosage: UNK
     Dates: start: 2016, end: 2016

REACTIONS (2)
  - Inhibitory drug interaction [Not Recovered/Not Resolved]
  - Blood glucose increased [Not Recovered/Not Resolved]
